FAERS Safety Report 12447227 (Version 1)
Quarter: 2016Q2

REPORT INFORMATION
  Report Type: Spontaneous
  Country: GB (occurrence: GB)
  Receive Date: 20160608
  Receipt Date: 20160608
  Transmission Date: 20160815
  Serious: Yes (Hospitalization)
  Sender: FDA-Public Use
  Company Number: GB-TEVA-664653ACC

PATIENT
  Age: 54 Year
  Sex: Female
  Weight: 66 kg

DRUGS (1)
  1. TRIMETHOPRIM. [Suspect]
     Active Substance: TRIMETHOPRIM
     Indication: URINARY TRACT INFECTION
     Dosage: 2 DOSAGE FORMS DAILY; 3 DAY COURSE.
     Route: 048
     Dates: start: 20160520, end: 20160521

REACTIONS (6)
  - Restlessness [Recovering/Resolving]
  - Palpitations [Recovered/Resolved]
  - Dizziness [Unknown]
  - Vomiting [Recovering/Resolving]
  - Nausea [Unknown]
  - Headache [Recovering/Resolving]

NARRATIVE: CASE EVENT DATE: 20160520
